FAERS Safety Report 5799733-4 (Version None)
Quarter: 2008Q2

REPORT INFORMATION
  Report Type: 
  Country: None (occurrence: None)
  Receive Date: 20080601
  Receipt Date: 20080131
  Transmission Date: 20081010
  Serious: No
  Sender: FDA-Public Use
  Company Number: US200802000152

PATIENT
  Age: 52 Year
  Sex: Female
  Weight: 69.8 kg

DRUGS (10)
  1. BYETTA [Suspect]
     Indication: TYPE 2 DIABETES MELLITUS
     Dosage: 5 UG, 2/D, SUBCUTANEOUS
     Route: 058
     Dates: start: 20071101
  2. METFORMIN HCL [Concomitant]
  3. GLYBURIDE [Concomitant]
  4. ELAVIL [Concomitant]
  5. EFFEXOR [Concomitant]
  6. XANAX /USA/ (ALPRAZOLAM) [Concomitant]
  7. PAXIL [Concomitant]
  8. SYNTHROID [Concomitant]
  9. ZOCOR [Concomitant]
  10. ENALAPRIL MALEATE [Concomitant]

REACTIONS (6)
  - AGITATION [None]
  - ANXIETY [None]
  - DEPRESSION [None]
  - FEELING JITTERY [None]
  - IMPATIENCE [None]
  - WEIGHT DECREASED [None]
